FAERS Safety Report 7580927-2 (Version None)
Quarter: 2011Q2

REPORT INFORMATION
  Report Type: 
  Country: None (occurrence: None)
  Receive Date: 20110629
  Receipt Date: 20110621
  Transmission Date: 20111010
  Serious: Yes (Death, Hospitalization)
  Sender: FDA-Public Use
  Company Number: MX-SANOFI-AVENTIS-2011SA039571

PATIENT
  Age: 84 Year
  Sex: Female

DRUGS (1)
  1. INSULIN GLARGINE [Suspect]
     Indication: TYPE 2 DIABETES MELLITUS
     Route: 058
     Dates: start: 20060101, end: 20110615

REACTIONS (5)
  - SEPTIC SHOCK [None]
  - PNEUMONIA [None]
  - MYOCARDIAL INFARCTION [None]
  - COLLAPSE OF LUNG [None]
  - RENAL FAILURE [None]
